FAERS Safety Report 5150272-3 (Version None)
Quarter: 2006Q4

REPORT INFORMATION
  Report Type: 
  Country: None (occurrence: None)
  Receive Date: 20061109
  Receipt Date: 20061109
  Transmission Date: 20070319
  Serious: No
  Sender: FDA-Public Use
  Company Number: None

PATIENT
  Sex: Female

DRUGS (1)
  1. CORDARONE [Suspect]
     Dosage: 200 MG PO Q DAY
     Route: 048

REACTIONS (5)
  - DRUG TOXICITY [None]
  - HEPATIC NECROSIS [None]
  - HYPERTENSION [None]
  - RENAL FAILURE ACUTE [None]
  - SYNCOPE [None]
